FAERS Safety Report 21551475 (Version 1)
Quarter: 2022Q4

REPORT INFORMATION
  Report Type: Report from Study
  Country: NL (occurrence: NL)
  Receive Date: 20221103
  Receipt Date: 20221103
  Transmission Date: 20230113
  Serious: Yes (Death)
  Sender: FDA-Public Use
  Company Number: NL-ABBVIE-4186267

PATIENT
  Age: 70 Year
  Sex: Female

DRUGS (4)
  1. CARBIDOPA\LEVODOPA [Suspect]
     Active Substance: CARBIDOPA\LEVODOPA
     Indication: Parkinson^s disease
     Dosage: ED: 5.5 ML, REMAINS AT 16 HOURS
     Route: 050
  2. CARBIDOPA\LEVODOPA [Suspect]
     Active Substance: CARBIDOPA\LEVODOPA
     Dosage: MD: 8.7 ML; CD: 8.5 ML/H; ED: 5.5 ML, REMAINS AT 16 HOURS
     Route: 050
  3. MIDAZOLAM [Concomitant]
     Active Substance: MIDAZOLAM
     Indication: Restlessness
  4. LORAZEPAM [Concomitant]
     Active Substance: LORAZEPAM
     Indication: Restlessness

REACTIONS (1)
  - General physical health deterioration [Fatal]
